FAERS Safety Report 23514712 (Version 1)
Quarter: 2024Q1

REPORT INFORMATION
  Report Type: Spontaneous
  Country: US (occurrence: US)
  Receive Date: 20240212
  Receipt Date: 20240212
  Transmission Date: 20240409
  Serious: No
  Sender: FDA-Public Use
  Company Number: US-KARYOPHARM-2023KPT002062

PATIENT

DRUGS (9)
  1. XPOVIO [Suspect]
     Active Substance: SELINEXOR
     Indication: Plasma cell myeloma
     Dosage: 40 MG, WEEKLY
     Route: 048
     Dates: start: 20231006, end: 20231011
  2. SYNTHROID [Concomitant]
     Active Substance: LEVOTHYROXINE SODIUM
  3. DEXAMETHASONE [Concomitant]
     Active Substance: DEXAMETHASONE
  4. ZOFRAN [Concomitant]
     Active Substance: ONDANSETRON HYDROCHLORIDE
  5. NIFEDIPINE [Concomitant]
     Active Substance: NIFEDIPINE
  6. GABAPENTIN [Concomitant]
     Active Substance: GABAPENTIN
  7. PHENERGAN [Concomitant]
     Active Substance: PROMETHAZINE HYDROCHLORIDE
  8. VELCADE [Concomitant]
     Active Substance: BORTEZOMIB
  9. POTASSIUM [Concomitant]
     Active Substance: POTASSIUM

REACTIONS (3)
  - Diarrhoea [Not Recovered/Not Resolved]
  - Nausea [Not Recovered/Not Resolved]
  - Blood creatinine increased [Unknown]

NARRATIVE: CASE EVENT DATE: 20231001
